FAERS Safety Report 20690199 (Version 1)
Quarter: 2022Q2

REPORT INFORMATION
  Report Type: Spontaneous
  Country: PT (occurrence: PT)
  Receive Date: 20220408
  Receipt Date: 20220408
  Transmission Date: 20220721
  Serious: Yes (Other)
  Sender: FDA-Public Use
  Company Number: None

PATIENT
  Age: 32 Year
  Sex: Male
  Weight: 79 kg

DRUGS (5)
  1. GADOBUTROL [Suspect]
     Active Substance: GADOBUTROL
     Indication: Scan with contrast
     Dosage: UNK, ONCE
     Route: 042
     Dates: start: 20210702, end: 20210702
  2. VORTIOXETINE [Concomitant]
     Active Substance: VORTIOXETINE
  3. ESOMEPRAZOLE [Concomitant]
     Active Substance: ESOMEPRAZOLE
  4. GINKGO [Concomitant]
     Active Substance: GINKGO
  5. MEXAZOLAM [Concomitant]
     Active Substance: MEXAZOLAM

REACTIONS (3)
  - Contrast media reaction [None]
  - Hyperthermia [None]
  - Dyspnoea [None]

NARRATIVE: CASE EVENT DATE: 20210702
